FAERS Safety Report 23884959 (Version 1)
Quarter: 2024Q2

REPORT INFORMATION
  Report Type: Other
  Country: US (occurrence: None)
  Receive Date: 20240522
  Receipt Date: 20240522
  Transmission Date: 20240716
  Serious: Yes (Hospitalization)
  Sender: FDA-Public Use
  Company Number: US-ROCHE-3563790

PATIENT
  Age: 51 Year
  Sex: Female

DRUGS (25)
  1. OCRELIZUMAB [Suspect]
     Active Substance: OCRELIZUMAB
     Indication: Multiple sclerosis
     Route: 065
  2. TERIFLUNOMIDE [Concomitant]
     Active Substance: TERIFLUNOMIDE
     Dates: start: 20210101, end: 20210420
  3. DIMETHYL FUMARATE [Concomitant]
     Active Substance: DIMETHYL FUMARATE
     Dates: start: 20211213
  4. BUPROPION HYDROCHLORIDE [Concomitant]
     Active Substance: BUPROPION HYDROCHLORIDE
     Dates: start: 20201016
  5. DEVICE [Concomitant]
     Active Substance: DEVICE
     Dates: start: 20200722, end: 202108
  6. NORTRIPTYLINE [Concomitant]
     Active Substance: NORTRIPTYLINE
     Dates: start: 20140904
  7. ONDANSETRON [Concomitant]
     Active Substance: ONDANSETRON
     Dates: start: 20190515
  8. MELATONIN [Concomitant]
     Active Substance: MELATONIN
     Dates: start: 20150709, end: 202107
  9. CARAFATE [Concomitant]
     Active Substance: SUCRALFATE
     Dates: start: 20130703
  10. AMANTADINE [Concomitant]
     Active Substance: AMANTADINE
     Dates: start: 20190614, end: 202108
  11. CARVEDILOL [Concomitant]
     Active Substance: CARVEDILOL
     Dates: start: 20200429
  12. DARIFENACIN [Concomitant]
     Active Substance: DARIFENACIN
     Dates: start: 20191003, end: 2021
  13. HYDROXYZINE PAMOATE [Concomitant]
     Active Substance: HYDROXYZINE PAMOATE
     Dates: start: 20190303
  14. FUROSEMIDE [Concomitant]
     Active Substance: FUROSEMIDE
     Dates: start: 20110525, end: 2021
  15. PANTOPRAZOLE SODIUM [Concomitant]
     Active Substance: PANTOPRAZOLE SODIUM
     Dates: start: 20130905
  16. METOPROLOL [Concomitant]
     Active Substance: METOPROLOL
     Dates: start: 20110526
  17. METHOCARBAMOL [Concomitant]
     Active Substance: METHOCARBAMOL
     Dates: start: 20130905, end: 2023
  18. DICLOFENAC SODIUM [Concomitant]
     Active Substance: DICLOFENAC\DICLOFENAC SODIUM
     Dates: start: 2020
  19. REGLAN [Concomitant]
     Active Substance: METOCLOPRAMIDE HYDROCHLORIDE
     Dates: start: 20210420, end: 20210422
  20. MODAFINIL [Concomitant]
     Active Substance: MODAFINIL
     Dates: start: 20210823
  21. ATORVASTATIN [Concomitant]
     Active Substance: ATORVASTATIN
     Dates: start: 20210721
  22. FERROUS SULFATE [Concomitant]
     Active Substance: FERROUS SULFATE
     Dates: start: 20221227
  23. MORPHINE SULFATE [Concomitant]
     Active Substance: MORPHINE SULFATE
     Dates: start: 20221104, end: 20230804
  24. BACLOFEN [Concomitant]
     Active Substance: BACLOFEN
     Dates: start: 20230619
  25. TRELEGY ELLIPTA [Concomitant]
     Active Substance: FLUTICASONE FUROATE\UMECLIDINIUM BROMIDE\VILANTEROL TRIFENATATE
     Dates: start: 20230221

REACTIONS (2)
  - Influenza [Recovered/Resolved]
  - Hypoxia [Recovered/Resolved]

NARRATIVE: CASE EVENT DATE: 20240209
